FAERS Safety Report 5951635-6 (Version None)
Quarter: 2008Q4

REPORT INFORMATION
  Report Type: 
  Country: None (occurrence: None)
  Receive Date: 20081113
  Receipt Date: 20081029
  Transmission Date: 20090506
  Serious: Yes (Disabling, Other)
  Sender: FDA-Public Use
  Company Number: GB-CELGENEUS-167-20484-08110201

PATIENT
  Age: 42 Year
  Sex: Female

DRUGS (5)
  1. TINZAPARIN [Suspect]
     Indication: THROMBOSIS PROPHYLAXIS
     Dosage: 7000 - 9000 IU
     Route: 058
  2. PREDNISOLONE [Suspect]
     Indication: SYSTEMIC LUPUS ERYTHEMATOSUS
     Route: 065
  3. WARFARIN SODIUM [Suspect]
     Indication: THROMBOSIS PROPHYLAXIS
     Route: 065
  4. ASPIRIN [Concomitant]
     Indication: DRUG USE FOR UNKNOWN INDICATION
  5. HYDROXYCHLOROQUINE SULFATE [Concomitant]
     Indication: SYSTEMIC LUPUS ERYTHEMATOSUS

REACTIONS (3)
  - DRUG EXPOSURE DURING PREGNANCY [None]
  - OSTEOPENIA [None]
  - SPINAL COMPRESSION FRACTURE [None]
